FAERS Safety Report 14929061 (Version 16)
Quarter: 2019Q3

REPORT INFORMATION
  Report Type: Spontaneous
  Country: CA (occurrence: CA)
  Receive Date: 20180523
  Receipt Date: 20190910
  Transmission Date: 20191004
  Serious: Yes (Hospitalization, Other)
  Sender: FDA-Public Use
  Company Number: CA-CELLTRION INC.-2018CA019518

PATIENT

DRUGS (17)
  1. INFLECTRA [Suspect]
     Active Substance: INFLIXIMAB-DYYB
     Dosage: 700 MG, EVERY 8 WEEKS
     Route: 042
     Dates: start: 20190104
  2. INFLECTRA [Suspect]
     Active Substance: INFLIXIMAB-DYYB
     Dosage: 700 MG, EVERY 8 WEEKS
     Route: 042
     Dates: start: 20190705
  3. INFLECTRA [Suspect]
     Active Substance: INFLIXIMAB-DYYB
     Dosage: 400 MG, (EVERY 0,2,6 WEEKS, THEN EVERY 8 WEEKS)
     Route: 042
     Dates: start: 20180514
  4. INFLECTRA [Suspect]
     Active Substance: INFLIXIMAB-DYYB
     Dosage: 700 MG, EVERY 8 WEEKS
     Route: 042
     Dates: start: 20190830
  5. VALSARTAN. [Concomitant]
     Active Substance: VALSARTAN
     Dosage: UNK
     Route: 065
  6. INFLECTRA [Suspect]
     Active Substance: INFLIXIMAB-DYYB
     Dosage: 400 MG, (EVERY 0,2,6 WEEKS THEN EVERY 8 WEEKS)
     Route: 042
     Dates: start: 20180904
  7. INFLECTRA [Suspect]
     Active Substance: INFLIXIMAB-DYYB
     Dosage: 400 MG, (EVERY 0,2,6 WEEKS THEN EVERY 8 WEEKS)
     Route: 042
     Dates: start: 20181026
  8. INFLECTRA [Suspect]
     Active Substance: INFLIXIMAB-DYYB
     Indication: COLITIS ULCERATIVE
     Dosage: 400 MG, (EVERY 0, 2, 6 WEEKS, THEN EVERY 8 WEEKS)
     Route: 042
     Dates: start: 20180403, end: 20181026
  9. CORTISONE [Concomitant]
     Active Substance: CORTISONE
     Dosage: UNK
     Route: 065
  10. MEZAVANT [Concomitant]
     Active Substance: MESALAMINE
     Dosage: UNK
     Route: 065
  11. CITALOPRAM [Concomitant]
     Active Substance: CITALOPRAM HYDROBROMIDE
     Dosage: UNK
     Route: 065
  12. INFLECTRA [Suspect]
     Active Substance: INFLIXIMAB-DYYB
     Dosage: 400 MG, (EVERY 0,2,6 WEEKS, THEN EVERY 8 WEEKS)
     Route: 042
     Dates: start: 20180416
  13. INFLECTRA [Suspect]
     Active Substance: INFLIXIMAB-DYYB
     Dosage: 400 MG, (EVERY 0,2,6 WEEKS, THEN EVERY 8 WEEKS)
     Route: 042
     Dates: start: 20180709
  14. INFLECTRA [Suspect]
     Active Substance: INFLIXIMAB-DYYB
     Dosage: 400 MG, (EVERY 0,2,6 WEEKS THEN EVERY 8 WEEKS)
     Route: 042
  15. INFLECTRA [Suspect]
     Active Substance: INFLIXIMAB-DYYB
     Dosage: 700 MG, EVERY 8 WEEKS
     Route: 042
     Dates: start: 20190515
  16. PANTOLOC [Concomitant]
     Active Substance: PANTOPRAZOLE SODIUM
     Dosage: UNK
     Route: 065
  17. AVAMYS [Concomitant]
     Active Substance: FLUTICASONE FUROATE
     Indication: EAR DISORDER
     Dosage: UNK
     Dates: start: 201809

REACTIONS (41)
  - Cataract [Unknown]
  - Haemoptysis [Unknown]
  - Intercepted product administration error [Unknown]
  - Rectal abscess [Recovering/Resolving]
  - Blood pressure fluctuation [Unknown]
  - Anal incontinence [Recovered/Resolved]
  - Rhinitis [Not Recovered/Not Resolved]
  - Sleep disorder [Unknown]
  - Depressed mood [Not Recovered/Not Resolved]
  - Nausea [Recovered/Resolved]
  - Product preparation error [Unknown]
  - Abdominal pain [Recovered/Resolved]
  - Tonsillar disorder [Unknown]
  - Bronchitis [Recovering/Resolving]
  - Productive cough [Not Recovered/Not Resolved]
  - Visual impairment [Unknown]
  - Condition aggravated [Unknown]
  - Epistaxis [Unknown]
  - Inappropriate schedule of product administration [Unknown]
  - Product use issue [Not Recovered/Not Resolved]
  - Radiation sickness syndrome [Unknown]
  - Decreased appetite [Unknown]
  - Hypotension [Unknown]
  - Otorrhoea [Unknown]
  - Arthralgia [Not Recovered/Not Resolved]
  - Ear infection [Not Recovered/Not Resolved]
  - Hot flush [Unknown]
  - Carotid artery occlusion [Unknown]
  - Throat cancer [Unknown]
  - Vomiting [Recovered/Resolved]
  - Fatigue [Not Recovered/Not Resolved]
  - Eating disorder [Unknown]
  - Diarrhoea [Not Recovered/Not Resolved]
  - Nasal sinus cancer [Not Recovered/Not Resolved]
  - Anal abscess [Unknown]
  - Joint swelling [Unknown]
  - Blood pressure increased [Unknown]
  - Asthenia [Not Recovered/Not Resolved]
  - Mental disorder [Unknown]
  - Off label use [Not Recovered/Not Resolved]
  - Abdominal discomfort [Unknown]

NARRATIVE: CASE EVENT DATE: 201804
